FAERS Safety Report 19377278 (Version 2)
Quarter: 2021Q2

REPORT INFORMATION
  Report Type: Spontaneous
  Country: DE (occurrence: DE)
  Receive Date: 20210604
  Receipt Date: 20210611
  Transmission Date: 20210717
  Serious: Yes (Hospitalization)
  Sender: FDA-Public Use
  Company Number: NVSC2021DE121037

PATIENT
  Age: 88 Year
  Sex: Female

DRUGS (5)
  1. RAMIPRIL. [Concomitant]
     Active Substance: RAMIPRIL
     Indication: PRODUCT USED FOR UNKNOWN INDICATION
     Dosage: 5 MG, BID (1?0?1?0 DOSAGE FORM)
     Route: 048
  2. FLECAINID ? 1 A PHARMA 100 MG TABLETTEN [Suspect]
     Active Substance: FLECAINIDE ACETATE
     Indication: PRODUCT USED FOR UNKNOWN INDICATION
     Dosage: 100 MG, BID (1?0?1?0 DOSAGE FORM)
     Route: 048
  3. VERAPAMIL 80 ? 1 A PHARMA [Suspect]
     Active Substance: VERAPAMIL HYDROCHLORIDE
     Indication: PRODUCT USED FOR UNKNOWN INDICATION
     Dosage: 80 MG, TID (0.5?0.5?0.5?0 DOSAGE FORM)
     Route: 048
  4. HYDROCHLOROTHIAZIDE. [Suspect]
     Active Substance: HYDROCHLOROTHIAZIDE
     Indication: PRODUCT USED FOR UNKNOWN INDICATION
     Dosage: 25 MG, QD (0.5?.25?0?0 DOSAGE FORM)
     Route: 048
  5. MARCUMAR [Concomitant]
     Active Substance: PHENPROCOUMON
     Indication: PRODUCT USED FOR UNKNOWN INDICATION
     Dosage: ACCORDING TO INR
     Route: 048

REACTIONS (5)
  - Electrolyte imbalance [Unknown]
  - Dyspnoea exertional [Unknown]
  - Renal impairment [Unknown]
  - Vertigo [Unknown]
  - General physical health deterioration [Unknown]
